FAERS Safety Report 6215312-9 (Version None)
Quarter: 2009Q2

REPORT INFORMATION
  Report Type: 
  Country: None (occurrence: None)
  Receive Date: 20090604
  Receipt Date: 20090529
  Transmission Date: 20091009
  Serious: Yes (Death, Hospitalization, Other)
  Sender: FDA-Public Use
  Company Number: PHHY2008GB33653

PATIENT
  Sex: Female

DRUGS (7)
  1. CLOZARIL [Suspect]
     Indication: SCHIZOPHRENIA, PARANOID TYPE
     Dosage: 450 MG DAILY
     Dates: start: 20010101
  2. CLOZARIL [Interacting]
     Dosage: 450 MG
     Route: 048
     Dates: start: 19990727
  3. CLOZARIL [Interacting]
     Dosage: 12.5 MG
     Route: 048
  4. LAMOTRIGINE [Interacting]
     Indication: SCHIZOPHRENIA
     Dosage: 500 MG, UNK
     Route: 048
  5. TRAMADOL HCL [Concomitant]
     Indication: PAIN
     Dosage: 200 MG, PRN
     Route: 048
     Dates: start: 20081101
  6. VENTOLIN [Concomitant]
     Dosage: 2 PUFFS TWICE DAILY
  7. CLENIL [Concomitant]
     Dosage: 200 MG INHALATION 2 PUFFS HD

REACTIONS (5)
  - ANTIPSYCHOTIC DRUG LEVEL INCREASED [None]
  - DRUG INTERACTION [None]
  - LOWER RESPIRATORY TRACT INFECTION [None]
  - LUNG CANCER METASTATIC [None]
  - TERMINAL STATE [None]
